FAERS Safety Report 11422159 (Version 2)
Quarter: 2016Q1

REPORT INFORMATION
  Report Type: Spontaneous
  Country: JP (occurrence: JP)
  Receive Date: 20150827
  Receipt Date: 20160126
  Transmission Date: 20160525
  Serious: Yes (Life-Threatening)
  Sender: FDA-Public Use
  Company Number: JP-ROCHE-1617449

PATIENT
  Age: 17 Year
  Sex: Female

DRUGS (10)
  1. PREDONINE [Concomitant]
     Active Substance: PREDNISOLONE\PREDNISOLONE ACETATE\PREDNISOLONE SODIUM SUCCINATE
     Indication: STILL^S DISEASE ADULT ONSET
     Dosage: THE FRACTIONATION DOSE FREQUENCY IS UNCERTAIN. ?DOSE INTERVAL UNCERTAINTY
     Route: 048
     Dates: start: 20150602, end: 20150615
  2. PREDONINE [Concomitant]
     Active Substance: PREDNISOLONE\PREDNISOLONE ACETATE\PREDNISOLONE SODIUM SUCCINATE
     Indication: STILL^S DISEASE ADULT ONSET
     Dosage: THE FRACTIONATION DOSE FREQUENCY IS UNCERTAIN. ?DOSE INTERVAL UNCERTAINTY
     Route: 048
     Dates: start: 20150625, end: 20150701
  3. PREDONINE [Concomitant]
     Active Substance: PREDNISOLONE\PREDNISOLONE ACETATE\PREDNISOLONE SODIUM SUCCINATE
     Indication: STILL^S DISEASE ADULT ONSET
     Dosage: THE FRACTIONATION DOSE FREQUENCY IS UNCERTAIN.
     Route: 048
     Dates: start: 20150729, end: 20150805
  4. RINDERON V [Concomitant]
     Active Substance: BETAMETHASONE VALERATE
     Indication: STILL^S DISEASE ADULT ONSET
     Route: 048
     Dates: start: 20150725, end: 20150729
  5. ACTEMRA [Suspect]
     Active Substance: TOCILIZUMAB
     Indication: STILL^S DISEASE ADULT ONSET
     Dosage: MOST RECENT DOS EWAS TAKEN ON 17/JUL/2015
     Route: 041
     Dates: start: 20150707, end: 20150717
  6. PREDONINE [Concomitant]
     Active Substance: PREDNISOLONE\PREDNISOLONE ACETATE\PREDNISOLONE SODIUM SUCCINATE
     Indication: STILL^S DISEASE ADULT ONSET
     Dosage: THE FRACTIONATION DOSE FREQUENCY IS UNCERTAIN. ?DOSE INTERVAL UNCERTAINTY
     Route: 048
     Dates: start: 20150616, end: 20150624
  7. METHYLPREDNISOLONE. [Concomitant]
     Active Substance: METHYLPREDNISOLONE
     Indication: STILL^S DISEASE ADULT ONSET
     Route: 041
     Dates: start: 20150722, end: 20150724
  8. METHOTREXATE [Concomitant]
     Active Substance: METHOTREXATE
     Indication: STILL^S DISEASE ADULT ONSET
     Dosage: THE FRACTIONATION DOSE FREQUENCY IS UNCERTAIN.
     Route: 065
     Dates: start: 20150618, end: 20150624
  9. PREDONINE [Concomitant]
     Active Substance: PREDNISOLONE\PREDNISOLONE ACETATE\PREDNISOLONE SODIUM SUCCINATE
     Indication: STILL^S DISEASE ADULT ONSET
     Dosage: THE FRACTIONATION DOSE FREQUENCY IS UNCERTAIN. ?DOSE INTERVAL UNCERTAINTY
     Route: 048
     Dates: start: 20150705, end: 20150721
  10. METHYLPREDNISOLONE. [Concomitant]
     Active Substance: METHYLPREDNISOLONE
     Indication: STILL^S DISEASE ADULT ONSET
     Dosage: THE FRACTIONATION DOSE FREQUENCY IS UNCERTAIN. ?DOSE INTERVAL UNCERTAINTY
     Route: 041
     Dates: start: 20150702, end: 20150704

REACTIONS (3)
  - Off label use [Unknown]
  - Histiocytosis haematophagic [Recovering/Resolving]
  - Acute lymphocytic leukaemia [Recovering/Resolving]

NARRATIVE: CASE EVENT DATE: 20150721
